FAERS Safety Report 11047506 (Version 2)
Quarter: 2015Q4

REPORT INFORMATION
  Report Type: Report from Study
  Country: BR (occurrence: BR)
  Receive Date: 20150420
  Receipt Date: 20151120
  Transmission Date: 20160304
  Serious: Yes (Other)
  Sender: FDA-Public Use
  Company Number: PHHY2015BR043973

PATIENT
  Sex: Female
  Weight: 51 kg

DRUGS (3)
  1. HYDREA [Suspect]
     Active Substance: HYDROXYUREA
     Indication: PRODUCT USED FOR UNKNOWN INDICATION
     Route: 065
  2. EXJADE [Suspect]
     Active Substance: DEFERASIROX
     Indication: SICKLE CELL ANAEMIA
     Dosage: 4 DF, UNK (3 TABLETS OF 500 MG)
     Route: 048
  3. EXJADE [Suspect]
     Active Substance: DEFERASIROX
     Dosage: 2250 MG, QD (4 TABLETS OF 500 MG AND 1 TABLET OF 250 MG DAILY)
     Route: 048

REACTIONS (5)
  - Aphasia [Unknown]
  - Cerebrovascular accident [Unknown]
  - Abasia [Unknown]
  - Wrong technique in product usage process [Unknown]
  - Amnesia [Unknown]
